FAERS Safety Report 5448632-6 (Version None)
Quarter: 2007Q3

REPORT INFORMATION
  Report Type: 
  Country: None (occurrence: None)
  Receive Date: 20070906
  Receipt Date: 20070906
  Transmission Date: 20080115
  Serious: Yes (Death)
  Sender: FDA-Public Use
  Company Number: None

PATIENT
  Sex: Male
  Weight: 80.7403 kg

DRUGS (3)
  1. FLUDARABINE PHOSPHATE [Suspect]
     Indication: APLASTIC ANAEMIA
     Dosage: 63 MG DAILY IV DRIP
     Route: 041
     Dates: start: 20060118, end: 20060122
  2. MELPHALAN [Suspect]
     Indication: APLASTIC ANAEMIA
     Dosage: 294 ONCE IV DRIP
     Route: 041
     Dates: start: 20060123, end: 20060123
  3. CAMPATH [Concomitant]

REACTIONS (3)
  - DEEP VEIN THROMBOSIS [None]
  - MYOCARDIAL INFARCTION [None]
  - PULMONARY EMBOLISM [None]
